FAERS Safety Report 23352533 (Version 2)
Quarter: 2024Q1

REPORT INFORMATION
  Report Type: Report from Study
  Country: US (occurrence: US)
  Receive Date: 20231230
  Receipt Date: 20240116
  Transmission Date: 20240409
  Serious: No
  Sender: FDA-Public Use
  Company Number: US-ABBVIE-5556154

PATIENT
  Sex: Female

DRUGS (2)
  1. HUMIRA [Suspect]
     Active Substance: ADALIMUMAB
     Indication: Colitis ulcerative
     Route: 058
     Dates: start: 20231115
  2. HUMIRA [Suspect]
     Active Substance: ADALIMUMAB
     Dosage: END DATE --2023
     Route: 058
     Dates: start: 20231016

REACTIONS (3)
  - Injection site erythema [Unknown]
  - Constipation [Recovered/Resolved]
  - Injection site pruritus [Unknown]

NARRATIVE: CASE EVENT DATE: 20230101
